FAERS Safety Report 10252535 (Version 1)
Quarter: 2014Q2

REPORT INFORMATION
  Report Type: Spontaneous
  Country: US (occurrence: None)
  Receive Date: 20140620
  Receipt Date: 20140620
  Transmission Date: 20141212
  Serious: Yes (Death, Life-Threatening, Hospitalization, Disabling)
  Sender: FDA-Public Use
  Company Number: None

PATIENT
  Age: 59 Year
  Sex: Male

DRUGS (1)
  1. 5FU [Suspect]
     Indication: NEOPLASM MALIGNANT
     Dates: start: 20140304, end: 20140306

REACTIONS (10)
  - Asthenia [None]
  - Diarrhoea [None]
  - Swelling face [None]
  - Eye swelling [None]
  - Hypersensitivity [None]
  - Pharyngeal oedema [None]
  - Aphagia [None]
  - Dysphagia [None]
  - Sepsis [None]
  - Dihydropyrimidine dehydrogenase deficiency [None]
